FAERS Safety Report 13940321 (Version 3)
Quarter: 2017Q4

REPORT INFORMATION
  Report Type: Spontaneous
  Country: DE (occurrence: DE)
  Receive Date: 20170906
  Receipt Date: 20171115
  Transmission Date: 20180320
  Serious: Yes (Other)
  Sender: FDA-Public Use
  Company Number: DE-JNJFOC-20170823082

PATIENT
  Age: 54 Year
  Sex: Female
  Weight: 68 kg

DRUGS (2)
  1. DUROGESIC SMAT [Suspect]
     Active Substance: FENTANYL
     Indication: SCIATICA
     Dosage: 75 MCG/HR PLUS 12.5 MCG/HR
     Route: 062
     Dates: start: 201105
  2. AMITRIPTYLIN [Concomitant]
     Active Substance: AMITRIPTYLINE
     Indication: DEPRESSION
     Route: 048
     Dates: start: 20170428

REACTIONS (8)
  - Drug administration error [Unknown]
  - Abdominal pain [Recovered/Resolved]
  - Restlessness [Recovered/Resolved]
  - Hypobarism [Recovered/Resolved]
  - Dermal absorption impaired [Unknown]
  - Withdrawal syndrome [Recovered/Resolved]
  - Drug ineffective [Unknown]
  - Cold sweat [Recovered/Resolved]

NARRATIVE: CASE EVENT DATE: 20170702
